FAERS Safety Report 9032095 (Version 1)
Quarter: 2013Q1

REPORT INFORMATION
  Report Type: Report from Study
  Country: US (occurrence: US)
  Receive Date: 20130122
  Receipt Date: 20130122
  Transmission Date: 20140127
  Serious: Yes (Hospitalization)
  Sender: FDA-Public Use
  Company Number: US-JNJFOC-20121206334

PATIENT
  Age: 69 Year
  Sex: Female
  Weight: 95.26 kg

DRUGS (2)
  1. USTEKINUMAB [Suspect]
     Indication: PSORIASIS
     Route: 058
     Dates: start: 20100414, end: 20100521
  2. CORTICOSTEROIDS [Concomitant]

REACTIONS (2)
  - Psoriasis [Recovered/Resolved]
  - Cellulitis [Recovered/Resolved]
